FAERS Safety Report 4446325-5 (Version None)
Quarter: 2004Q3

REPORT INFORMATION
  Report Type: 
  Country: None (occurrence: None)
  Receive Date: 20040902
  Receipt Date: 20040817
  Transmission Date: 20050211
  Serious: Yes (Other)
  Sender: FDA-Public Use
  Company Number: B0343337A

PATIENT
  Age: 56 Year
  Sex: Male

DRUGS (5)
  1. ONDANSETRON HCL [Suspect]
  2. AMOX. TRIHYD+POT. CLAVULAN [Concomitant]
  3. KETOROLAC TROMETAMOL [Concomitant]
  4. RANITIDINE HYDROCHLORIDE [Concomitant]
  5. DALTEPARIN SODIUM [Concomitant]

REACTIONS (1)
  - SUBCORNEAL PUSTULAR DERMATOSIS [None]
